FAERS Safety Report 9199811 (Version 2)
Quarter: 2013Q2

REPORT INFORMATION
  Report Type: Spontaneous
  Country: ES (occurrence: ES)
  Receive Date: 20130329
  Receipt Date: 20130415
  Transmission Date: 20140414
  Serious: Yes (Other)
  Sender: FDA-Public Use
  Company Number: ES-JNJFOC-20130313585

PATIENT
  Age: 68 Year
  Sex: Male
  Weight: 68 kg

DRUGS (11)
  1. STELARA [Suspect]
     Indication: PSORIASIS
     Route: 058
     Dates: start: 20100316, end: 20121120
  2. RANITIDINE [Concomitant]
     Indication: DRUG TOLERANCE
     Route: 048
  3. ALLOPURINOL [Concomitant]
     Indication: HYPERURICAEMIA
     Route: 048
  4. CLOPIDOGREL [Concomitant]
     Indication: ISCHAEMIC CARDIOMYOPATHY
     Route: 048
  5. ACENOCUMAROL [Concomitant]
     Indication: ISCHAEMIC CARDIOMYOPATHY
     Route: 065
  6. ATENOLOL [Concomitant]
     Indication: HYPERTENSION
     Route: 048
  7. METFORMIN AND SITAGLIPTIN [Concomitant]
     Indication: DIABETES MELLITUS
     Dosage: 50/1000 MG
     Route: 048
  8. DIAMICRON [Concomitant]
     Indication: DIABETES MELLITUS
     Route: 048
  9. ATORVASTATIN [Concomitant]
     Indication: HYPERCHOLESTEROLAEMIA
     Route: 048
  10. ATENOLOL + CHLORTHALIDONE [Concomitant]
     Indication: HYPERTENSION
     Dosage: 100/25 MG
     Route: 048
  11. FENOFIBRATE [Concomitant]
     Indication: HYPERTRIGLYCERIDAEMIA
     Route: 048

REACTIONS (1)
  - Extranodal marginal zone B-cell lymphoma (MALT type) [Recovered/Resolved]
